FAERS Safety Report 17672277 (Version 1)
Quarter: 2020Q2

REPORT INFORMATION
  Report Type: Spontaneous
  Country: CZ (occurrence: CZ)
  Receive Date: 20200415
  Receipt Date: 20200415
  Transmission Date: 20200713
  Serious: Yes (Other)
  Sender: FDA-Public Use
  Company Number: CZ-JNJFOC-20200409121

PATIENT
  Sex: Male

DRUGS (3)
  1. DUROGESIC [Suspect]
     Active Substance: FENTANYL
     Indication: PAIN
     Route: 062
  2. DUROGESIC [Suspect]
     Active Substance: FENTANYL
     Indication: SPINAL PAIN
     Route: 062
     Dates: end: 202003
  3. PALGOTAL [Concomitant]
     Indication: PAIN MANAGEMENT

REACTIONS (4)
  - Blister [Not Recovered/Not Resolved]
  - Seizure [Recovering/Resolving]
  - Product administered at inappropriate site [Unknown]
  - Rash [Not Recovered/Not Resolved]
